FAERS Safety Report 19514467 (Version 2)
Quarter: 2021Q3

REPORT INFORMATION
  Report Type: Spontaneous
  Country: US (occurrence: US)
  Receive Date: 20210709
  Receipt Date: 20210804
  Transmission Date: 20211014
  Serious: Yes (Hospitalization, Other)
  Sender: FDA-Public Use
  Company Number: US-SA-2021SA226960

PATIENT
  Age: 49 Year
  Sex: Male

DRUGS (1)
  1. DUPIXENT [Suspect]
     Active Substance: DUPILUMAB
     Indication: DERMATITIS ATOPIC
     Dosage: 300 MG, QOW; 300 MG/2ML
     Route: 058
     Dates: start: 202104

REACTIONS (4)
  - Dizziness [Unknown]
  - Vertigo [Unknown]
  - Seizure [Unknown]
  - Tremor [Unknown]

NARRATIVE: CASE EVENT DATE: 2021
